FAERS Safety Report 20618204 (Version 1)
Quarter: 2022Q1

REPORT INFORMATION
  Report Type: Spontaneous
  Country: JP (occurrence: JP)
  Receive Date: 20220321
  Receipt Date: 20220321
  Transmission Date: 20220423
  Serious: Yes (Other)
  Sender: FDA-Public Use
  Company Number: JP-LUPIN PHARMACEUTICALS INC.-2022-03813

PATIENT
  Age: 23 Year
  Sex: Female

DRUGS (18)
  1. METHYLPREDNISOLONE [Suspect]
     Active Substance: METHYLPREDNISOLONE
     Indication: Chronic active Epstein-Barr virus infection
     Dosage: 1000 MG, QD
     Route: 065
  2. METHYLPREDNISOLONE [Suspect]
     Active Substance: METHYLPREDNISOLONE
     Indication: Haemophagocytic lymphohistiocytosis
  3. METHYLPREDNISOLONE [Suspect]
     Active Substance: METHYLPREDNISOLONE
     Indication: Epstein-Barr virus associated lymphoproliferative disorder
  4. ETOPOSIDE [Suspect]
     Active Substance: ETOPOSIDE
     Indication: Chronic active Epstein-Barr virus infection
     Dosage: 75 MILLIGRAM/SQ. METER, QD (ALSO RECEIVED AS A PART OF DEVIC CHEMOTHERAPY REGIMEN)
     Route: 065
  5. ETOPOSIDE [Suspect]
     Active Substance: ETOPOSIDE
     Indication: Haemophagocytic lymphohistiocytosis
  6. ETOPOSIDE [Suspect]
     Active Substance: ETOPOSIDE
     Indication: Epstein-Barr virus associated lymphoproliferative disorder
  7. DEXAMETHASONE [Concomitant]
     Active Substance: DEXAMETHASONE
     Indication: Chronic active Epstein-Barr virus infection
     Dosage: UNK
     Route: 065
  8. DEXAMETHASONE [Concomitant]
     Active Substance: DEXAMETHASONE
     Indication: Haemophagocytic lymphohistiocytosis
  9. DEXAMETHASONE [Concomitant]
     Active Substance: DEXAMETHASONE
     Indication: Epstein-Barr virus associated lymphoproliferative disorder
  10. IFOSFAMIDE [Concomitant]
     Active Substance: IFOSFAMIDE
     Indication: Chronic active Epstein-Barr virus infection
     Dosage: UNK
     Route: 065
  11. IFOSFAMIDE [Concomitant]
     Active Substance: IFOSFAMIDE
     Indication: Haemophagocytic lymphohistiocytosis
  12. IFOSFAMIDE [Concomitant]
     Active Substance: IFOSFAMIDE
     Indication: Epstein-Barr virus associated lymphoproliferative disorder
  13. CARBOPLATIN [Concomitant]
     Active Substance: CARBOPLATIN
     Indication: Chronic active Epstein-Barr virus infection
     Dosage: UNK
     Route: 065
  14. CARBOPLATIN [Concomitant]
     Active Substance: CARBOPLATIN
     Indication: Haemophagocytic lymphohistiocytosis
  15. CARBOPLATIN [Concomitant]
     Active Substance: CARBOPLATIN
     Indication: Epstein-Barr virus associated lymphoproliferative disorder
  16. PREDNISOLONE [Concomitant]
     Active Substance: PREDNISOLONE
     Indication: Chronic active Epstein-Barr virus infection
     Dosage: 80 MILLIGRAM, QD (DAYS 6-13)
     Route: 065
  17. PREDNISOLONE [Concomitant]
     Active Substance: PREDNISOLONE
     Indication: Haemophagocytic lymphohistiocytosis
     Dosage: 40 MILLIGRAM, QD (DAYS 14-19)
     Route: 065
  18. PREDNISOLONE [Concomitant]
     Active Substance: PREDNISOLONE
     Indication: Epstein-Barr virus associated lymphoproliferative disorder
     Dosage: 20 MILLIGRAM, QD (AFTER DAY 20)
     Route: 065

REACTIONS (3)
  - Exposure during pregnancy [Unknown]
  - Foetal death [Unknown]
  - Off label use [Unknown]
